FAERS Safety Report 9916381 (Version 2)
Quarter: 2014Q1

REPORT INFORMATION
  Report Type: Spontaneous
  Country: CA (occurrence: CA)
  Receive Date: 20140221
  Receipt Date: 20140221
  Transmission Date: 20141002
  Serious: Yes (Other)
  Sender: FDA-Public Use
  Company Number: CA-PFIZER INC-2012227105

PATIENT
  Age: 40 Year
  Sex: Male
  Weight: 89 kg

DRUGS (4)
  1. EFFEXOR [Suspect]
     Indication: DEPRESSION
     Dosage: 35 MG, 1X/DAY
     Route: 048
     Dates: start: 199904
  2. EFFEXOR [Suspect]
     Dosage: 75 MG, UNK
     Route: 048
  3. EFFEXOR [Suspect]
     Dosage: 150 MG, UNK
     Route: 048
  4. EFFEXOR [Suspect]
     Dosage: UNK
     Route: 048

REACTIONS (8)
  - Suicidal ideation [Not Recovered/Not Resolved]
  - Bipolar I disorder [Not Recovered/Not Resolved]
  - Drug dependence [Not Recovered/Not Resolved]
  - Aggression [Unknown]
  - Anger [Unknown]
  - Imprisonment [Unknown]
  - Dizziness [Not Recovered/Not Resolved]
  - Anxiety [Not Recovered/Not Resolved]
